FAERS Safety Report 4442938-5 (Version None)
Quarter: 2004Q3

REPORT INFORMATION
  Report Type: 
  Country: None (occurrence: None)
  Receive Date: 20040907
  Receipt Date: 20040907
  Transmission Date: 20050211
  Serious: Yes (Life-Threatening)
  Sender: FDA-Public Use
  Company Number: None

PATIENT
  Age: 40 Year
  Sex: Female
  Weight: 71.2147 kg

DRUGS (1)
  1. SYNTHROID [Suspect]
     Indication: OVERDOSE
     Dosage: 1 TABLET A DAY
     Dates: start: 20031201, end: 20040701

REACTIONS (7)
  - AGGRESSION [None]
  - CONFUSIONAL STATE [None]
  - DIZZINESS [None]
  - NERVOUS SYSTEM DISORDER [None]
  - PERSONALITY CHANGE [None]
  - THINKING ABNORMAL [None]
  - WEIGHT DECREASED [None]
